FAERS Safety Report 6666694-5 (Version None)
Quarter: 2010Q2

REPORT INFORMATION
  Report Type: 
  Country: None (occurrence: None)
  Receive Date: 20100401
  Receipt Date: 20100401
  Transmission Date: 20101027
  Serious: No
  Sender: FDA-Public Use
  Company Number: None

PATIENT
  Age: 26 Year
  Sex: Female

DRUGS (2)
  1. LAMICTAL [Suspect]
     Dates: start: 20080413, end: 20080814
  2. ORTHO TRI-CYCLEN LO [Suspect]
     Dates: start: 20080301, end: 20080814

REACTIONS (14)
  - ALANINE AMINOTRANSFERASE INCREASED [None]
  - ASPARTATE AMINOTRANSFERASE INCREASED [None]
  - BLOOD ALKALINE PHOSPHATASE INCREASED [None]
  - BLOOD BILIRUBIN INCREASED [None]
  - BLOOD CREATINE PHOSPHOKINASE INCREASED [None]
  - CHROMATURIA [None]
  - DRUG HYPERSENSITIVITY [None]
  - FATIGUE [None]
  - HEPATIC ENZYME INCREASED [None]
  - JAUNDICE [None]
  - LIVER DISORDER [None]
  - NAUSEA [None]
  - PAIN [None]
  - PRURITUS [None]
